FAERS Safety Report 5566169-0 (Version None)
Quarter: 2007Q4

REPORT INFORMATION
  Report Type: 
  Country: None (occurrence: None)
  Receive Date: 20071217
  Receipt Date: 20071217
  Transmission Date: 20080405
  Serious: Yes (Life-Threatening)
  Sender: FDA-Public Use
  Company Number: None

PATIENT
  Age: 41 Year
  Sex: Male
  Weight: 76.2043 kg

DRUGS (4)
  1. NORVASC [Suspect]
     Indication: HYPERTENSION
     Dosage: 10MG 1 ORAL
     Route: 048
     Dates: start: 20070101
  2. LISINOPRIL [Concomitant]
  3. LABETALOL HCL [Concomitant]
  4. ISOSORBIDE DINITRATE [Concomitant]

REACTIONS (1)
  - ANAPHYLACTIC REACTION [None]
